FAERS Safety Report 23529533 (Version 4)
Quarter: 2024Q2

REPORT INFORMATION
  Report Type: Spontaneous
  Country: US (occurrence: US)
  Receive Date: 20240216
  Receipt Date: 20240411
  Transmission Date: 20240716
  Serious: Yes (Life-Threatening, Hospitalization, Other)
  Sender: FDA-Public Use
  Company Number: US-NOVOPROD-1173884

PATIENT
  Age: 71 Year
  Sex: Female
  Weight: 67.574 kg

DRUGS (19)
  1. OZEMPIC [Suspect]
     Active Substance: SEMAGLUTIDE
     Dosage: 1 MG
     Route: 058
     Dates: start: 20231228, end: 20240130
  2. OZEMPIC [Suspect]
     Active Substance: SEMAGLUTIDE
     Indication: Type 2 diabetes mellitus
     Dosage: 2MG ONCE WEEKLY EVERY TUESDAY
     Route: 058
     Dates: start: 2021, end: 20231205
  3. OZEMPIC [Suspect]
     Active Substance: SEMAGLUTIDE
     Dosage: 2MG ONCE WEEKLY EVERY TUESDAY
     Route: 058
     Dates: start: 20231221, end: 20231228
  4. OZEMPIC [Suspect]
     Active Substance: SEMAGLUTIDE
     Dosage: 0.5 MG
     Route: 058
     Dates: start: 20240131
  5. ACETAMINOPHEN [Concomitant]
     Active Substance: ACETAMINOPHEN
     Indication: Product used for unknown indication
     Dosage: TKAE 2 TABLETS (1000 MG)BY MOUTH EVERY 6 HOURS IF NEEDED
     Route: 048
  6. BIOTIN [Concomitant]
     Active Substance: BIOTIN
     Indication: Product used for unknown indication
     Dosage: TAKE 5000 MCG BY MOUTH IF NEEDED
     Route: 048
  7. COQ10 UBIQUINOL [Concomitant]
     Indication: Product used for unknown indication
     Dosage: TAKE 1 TABLET BY MOUTH ONCE DAILY
     Route: 048
  8. HYDROCHLOROTHIAZIDE [Concomitant]
     Active Substance: HYDROCHLOROTHIAZIDE
     Indication: Product used for unknown indication
     Dosage: 12.5 MG, QD(TAKE 1 CAPSULE BY MOUTH IN THE MORNING)
     Route: 048
  9. COZAAR [Concomitant]
     Active Substance: LOSARTAN POTASSIUM
     Indication: Product used for unknown indication
     Dosage: 50 MG, QD(TAKE 1 TABLET BY MOUTH IN THE MORNING)
     Route: 048
  10. SINGULAIR [Concomitant]
     Active Substance: MONTELUKAST SODIUM
     Indication: Product used for unknown indication
     Dosage: 10 MG, QD(TAKE 1 TABLET BY MOUTH IN THE MORNING)
     Route: 048
  11. NALTREXONE [Concomitant]
     Active Substance: NALTREXONE
     Indication: Product used for unknown indication
     Dosage: 0.5 MG, BID( TAKE 1 CAPSULE BY MOUTH IN THE MORNING AND 1 IN THE EVENING)
     Route: 048
  12. OMEGA 3 EPA DHA [Concomitant]
     Indication: Product used for unknown indication
     Dosage: TAKE 1 CAPSULE BY MOUTH ONCE DAILY
     Route: 048
  13. MAGNESIUM [Concomitant]
     Active Substance: MAGNESIUM
     Indication: Product used for unknown indication
     Dosage: 130 MG 3 AT BEDITIME
  14. VITAMIN D3 [Concomitant]
     Active Substance: CHOLECALCIFEROL
     Indication: Product used for unknown indication
     Dosage: 5000 IU, QD
  15. PROTOPIC [Concomitant]
     Active Substance: TACROLIMUS
     Indication: Product used for unknown indication
     Dosage: 0.1 %, BID WITH ECSEMA PRN
     Route: 061
  16. PROGESTERONE [Concomitant]
     Active Substance: PROGESTERONE
     Indication: Product used for unknown indication
     Dosage: 75 MG, QD( TAKE 1 CAPSULE BY MOUTH AT BEDTIME)
     Route: 048
  17. CRESTOR [Concomitant]
     Active Substance: ROSUVASTATIN CALCIUM
     Indication: Product used for unknown indication
     Dosage: 20 MG, QD(TAKE 1 TABLET BY MOUTH AT BEDTIME)
     Route: 048
  18. VITAMIN E-400 [Concomitant]
     Indication: Product used for unknown indication
     Dosage: TAKE 1 CAPSULE BY MOUTH IN THE MORNING AND 1 CAPSULE IN THE EVENING
     Route: 048
  19. PROBIOTIC ACIDOPHILUS [LACTOBACILLUS ACIDOPHILUS] [Concomitant]
     Indication: Product used for unknown indication
     Dosage: TAKE 1 CAPSULE BY MOUTH AT BEDTIME
     Route: 048

REACTIONS (7)
  - Appendicitis perforated [Recovered/Resolved]
  - Postoperative wound infection [Recovered/Resolved]
  - Wound [Recovered/Resolved]
  - Colitis [Unknown]
  - Glycosylated haemoglobin decreased [Not Recovered/Not Resolved]
  - Dizziness [Not Recovered/Not Resolved]
  - Illness [Recovered/Resolved]

NARRATIVE: CASE EVENT DATE: 20210901
